FAERS Safety Report 8990717 (Version 2)
Quarter: 2013Q1

REPORT INFORMATION
  Report Type: Spontaneous
  Country: US (occurrence: US)
  Receive Date: 20121228
  Receipt Date: 20130109
  Transmission Date: 20140127
  Serious: No
  Sender: FDA-Public Use
  Company Number: US-PFIZER INC-2012330122

PATIENT
  Age: 76 Year
  Sex: Male
  Weight: 90.7 kg

DRUGS (3)
  1. VIAGRA [Suspect]
     Indication: PROMOTION OF PERIPHERAL CIRCULATION
     Dosage: 100 MG, AS NEEDED
     Route: 048
     Dates: start: 2007, end: 201212
  2. GLUCOTROL [Concomitant]
     Dosage: UNK
  3. LIPITOR [Concomitant]
     Dosage: UNK

REACTIONS (3)
  - Off label use [Unknown]
  - Muscle spasms [Unknown]
  - Dizziness [Unknown]
